FAERS Safety Report 8550230-2 (Version None)
Quarter: 2012Q3

REPORT INFORMATION
  Report Type: 
  Country: None (occurrence: None)
  Receive Date: 20120730
  Receipt Date: 20110331
  Transmission Date: 20120928
  Serious: No
  Sender: FDA-Public Use
  Company Number: US-ALLERGAN-1104570US

PATIENT
  Age: 49 Year
  Sex: Male

DRUGS (2)
  1. LUMIGAN [Suspect]
     Indication: INTRAOCULAR PRESSURE INCREASED
     Dosage: 1 DROP USED ONCE IN ONLY ONE EYE
     Route: 047
     Dates: start: 20110330, end: 20110330
  2. ACETAZOLAMIDE [Concomitant]
     Indication: INTRAOCULAR PRESSURE INCREASED
     Dosage: UNK
     Route: 048

REACTIONS (2)
  - HEADACHE [None]
  - OCULAR HYPERAEMIA [None]
